FAERS Safety Report 20311133 (Version 1)
Quarter: 2022Q1

REPORT INFORMATION
  Report Type: Spontaneous
  Country: GB (occurrence: GB)
  Receive Date: 20220107
  Receipt Date: 20220107
  Transmission Date: 20220423
  Serious: Yes (Death)
  Sender: FDA-Public Use
  Company Number: GB-AMRYT PHARMACEUTICALS DAC-AEGR005385

PATIENT

DRUGS (1)
  1. METRELEPTIN [Suspect]
     Active Substance: METRELEPTIN
     Indication: Hormone level abnormal
     Dosage: 3 MILLIGRAM, QD
     Route: 048
     Dates: start: 20190514

REACTIONS (3)
  - Death [Fatal]
  - Off label use [Unknown]
  - Incorrect route of product administration [Unknown]
